FAERS Safety Report 15884108 (Version 1)
Quarter: 2019Q1

REPORT INFORMATION
  Report Type: Report from Study
  Country: US (occurrence: US)
  Receive Date: 20190129
  Receipt Date: 20190129
  Transmission Date: 20190417
  Serious: Yes (Death)
  Sender: FDA-Public Use
  Company Number: US-ROCHE-2254502

PATIENT
  Age: 62 Year
  Sex: Female
  Weight: 101.24 kg

DRUGS (1)
  1. AVASTIN [Suspect]
     Active Substance: BEVACIZUMAB
     Indication: COLON CANCER
     Route: 042
     Dates: start: 20180720

REACTIONS (1)
  - Death [Fatal]

NARRATIVE: CASE EVENT DATE: 20190119
